FAERS Safety Report 4578622-7 (Version None)
Quarter: 2005Q1

REPORT INFORMATION
  Report Type: 
  Country: None (occurrence: None)
  Receive Date: 20050209
  Receipt Date: 20050131
  Transmission Date: 20050727
  Serious: Yes (Death)
  Sender: FDA-Public Use
  Company Number: HQWYE992031JAN05

PATIENT
  Sex: Male

DRUGS (1)
  1. RAPAMUNE [Suspect]
     Dosage: ORAL
     Route: 048
     Dates: start: 20001113, end: 20031201

REACTIONS (2)
  - BRONCHIAL CARCINOMA [None]
  - METASTASIS [None]
